FAERS Safety Report 5134784-4 (Version None)
Quarter: 2006Q4

REPORT INFORMATION
  Report Type: 
  Country: None (occurrence: None)
  Receive Date: 20061025
  Receipt Date: 20061017
  Transmission Date: 20070319
  Serious: Yes (Death)
  Sender: FDA-Public Use
  Company Number: IT-MERCK-0610ITA00028

PATIENT
  Age: 59 Year
  Sex: Male

DRUGS (3)
  1. CANCIDAS [Suspect]
     Indication: ASPERGILLOSIS
     Route: 065
  2. ANTIMICROBIAL (UNSPECIFIED) [Concomitant]
     Route: 065
  3. VORICONAZOLE [Concomitant]
     Route: 065

REACTIONS (3)
  - DRUG INEFFECTIVE [None]
  - DYSPNOEA [None]
  - FUNGAL INFECTION [None]
